FAERS Safety Report 16469512 (Version 1)
Quarter: 2019Q2

REPORT INFORMATION
  Report Type: Spontaneous
  Country: US (occurrence: US)
  Receive Date: 20190624
  Receipt Date: 20190624
  Transmission Date: 20190711
  Serious: No
  Sender: FDA-Public Use
  Company Number: US-SA-2019SA166096

PATIENT
  Age: 64 Year
  Sex: Female

DRUGS (1)
  1. DUPIXENT [Suspect]
     Active Substance: DUPILUMAB
     Indication: SPINAL OSTEOARTHRITIS
     Dosage: 600 MG, 1X
     Route: 058

REACTIONS (1)
  - Intercepted product prescribing error [Not Recovered/Not Resolved]
